FAERS Safety Report 5493440-3 (Version None)
Quarter: 2007Q4

REPORT INFORMATION
  Report Type: 
  Country: None (occurrence: None)
  Receive Date: 20071022
  Receipt Date: 20071022
  Transmission Date: 20080405
  Serious: Yes (Life-Threatening, Disabling)
  Sender: FDA-Public Use
  Company Number: None

PATIENT
  Age: 38 Year
  Sex: Male
  Weight: 92.9874 kg

DRUGS (1)
  1. CHANTIX [Suspect]
     Indication: SMOKING CESSATION THERAPY
     Dosage: ONE ONCE A DAY PO
     Route: 048
     Dates: start: 20071015, end: 20071017

REACTIONS (10)
  - ABNORMAL DREAMS [None]
  - CONFUSIONAL STATE [None]
  - CRYING [None]
  - FEAR [None]
  - FEELING ABNORMAL [None]
  - HYPERSOMNIA [None]
  - MEMORY IMPAIRMENT [None]
  - SUICIDAL IDEATION [None]
  - THINKING ABNORMAL [None]
  - TREATMENT NONCOMPLIANCE [None]
